FAERS Safety Report 9068272 (Version 2)
Quarter: 2013Q3

REPORT INFORMATION
  Report Type: Report from Study
  Country: DE (occurrence: DE)
  Receive Date: 20130206
  Receipt Date: 20130905
  Transmission Date: 20140515
  Serious: Yes (Death)
  Sender: FDA-Public Use
  Company Number: DE-UCBSA-077470

PATIENT
  Sex: Female

DRUGS (2)
  1. CERTOLIZUMAB PEGOL [Suspect]
     Indication: RHEUMATOID ARTHRITIS
     Dosage: DOSE: 400MG
     Dates: start: 201001, end: 201002
  2. MTX [Concomitant]
     Indication: RHEUMATOID ARTHRITIS
     Dosage: DOSE: 10MG
     Dates: start: 201003

REACTIONS (3)
  - Right ventricular failure [Fatal]
  - Acute respiratory distress syndrome [Fatal]
  - Pneumonia [Fatal]
